FAERS Safety Report 9467392 (Version 1)
Quarter: 2013Q3

REPORT INFORMATION
  Report Type: Spontaneous
  Country: US (occurrence: None)
  Receive Date: 20130819
  Receipt Date: 20130819
  Transmission Date: 20140515
  Serious: No
  Sender: FDA-Public Use
  Company Number: None

PATIENT
  Age: 54 Year
  Sex: Female
  Weight: 75.3 kg

DRUGS (1)
  1. TRIAMETINE/HCTZ [Suspect]
     Indication: DRUG THERAPY
     Dosage: 37.5 -25MG 1 DAILY ORAL
     Route: 048

REACTIONS (3)
  - Meniere^s disease [None]
  - No therapeutic response [None]
  - Condition aggravated [None]
